FAERS Safety Report 7193979-9 (Version None)
Quarter: 2010Q4

REPORT INFORMATION
  Report Type: 
  Country: None (occurrence: None)
  Receive Date: 20101223
  Receipt Date: 20100914
  Transmission Date: 20110411
  Serious: No
  Sender: FDA-Public Use
  Company Number: US-AMGEN-USANI2010001392

PATIENT

DRUGS (2)
  1. ENBREL [Suspect]
     Indication: PSORIASIS
  2. HUMIRA [Suspect]
     Indication: PSORIASIS
     Dosage: 40 MG, Q2WK
     Route: 058

REACTIONS (2)
  - ARTHROPATHY [None]
  - PSORIASIS [None]
